FAERS Safety Report 20484169 (Version 1)
Quarter: 2022Q1

REPORT INFORMATION
  Report Type: Spontaneous
  Country: NL (occurrence: NL)
  Receive Date: 20220217
  Receipt Date: 20220217
  Transmission Date: 20220423
  Serious: Yes (Hospitalization)
  Sender: FDA-Public Use
  Company Number: None

PATIENT
  Sex: Female
  Weight: 60 kg

DRUGS (5)
  1. RITUXIMAB [Suspect]
     Active Substance: RITUXIMAB
     Indication: Non-Hodgkin^s lymphoma
     Dosage: EENMALIG 375 MG/M2
     Route: 065
     Dates: start: 20211231
  2. CYCLOPHOSPHAMIDE [Concomitant]
     Active Substance: CYCLOPHOSPHAMIDE
     Dosage: 1 MG/MG (MILLIGRAM PER MILLIGRAM)
  3. VINCRISTINE [Concomitant]
     Active Substance: VINCRISTINE
     Dosage: INJECTIE/INFUUS, 1 MG/MG (MILLIGRAM PER MILLIGRAM)
  4. DOXORUBICIN [Concomitant]
     Active Substance: DOXORUBICIN
     Dosage: INFUUS, 1 MG/MG (MILLIGRAM PER MILLIGRAM)
  5. PREDNISOLONE [Concomitant]
     Active Substance: PREDNISOLONE

REACTIONS (1)
  - Pneumonitis [Not Recovered/Not Resolved]
